FAERS Safety Report 5187767-2 (Version None)
Quarter: 2006Q4

REPORT INFORMATION
  Report Type: 
  Country: None (occurrence: None)
  Receive Date: 20061221
  Receipt Date: 20060426
  Transmission Date: 20070319
  Serious: Yes (Other)
  Sender: FDA-Public Use
  Company Number: US-BAYER-200611790BCC

PATIENT
  Age: 77 Year
  Sex: Female
  Weight: 73 kg

DRUGS (8)
  1. PHILLIPS LIQID GELS - 30'S [Suspect]
     Indication: NASOPHARYNGITIS
     Dosage: TOTAL DAILY DOSE: 300 MG  UNIT DOSE: 100 MG
     Route: 048
     Dates: start: 20060601
  2. PHILLIPS LIQID GELS - 30'S [Suspect]
     Route: 048
     Dates: start: 20060424
  3. AMOXICILLIN [Suspect]
     Indication: ACUTE SINUSITIS
     Dosage: TOTAL DAILY DOSE: 2000 MG  UNIT DOSE: 1000 MG
     Dates: start: 20060414
  4. DILTIA XT [Concomitant]
     Dosage: UNIT DOSE: 180 MG
  5. TEMAZEPAM [Concomitant]
     Dosage: TOTAL DAILY DOSE: 15 MG  UNIT DOSE: 15 MG
  6. FOSAMAX [Concomitant]
     Dosage: UNIT DOSE: 70 MG
     Dates: start: 20060414
  7. TYLENOL [Concomitant]
     Dates: start: 20060414
  8. AMBIEN [Concomitant]
     Dates: start: 20060706

REACTIONS (9)
  - ABDOMINAL PAIN LOWER [None]
  - ANOREXIA [None]
  - CONSTIPATION [None]
  - DYSURIA [None]
  - HAEMATURIA [None]
  - HEART RATE INCREASED [None]
  - MICTURITION DISORDER [None]
  - NEPHROLITHIASIS [None]
  - RENAL CYST [None]
